FAERS Safety Report 4740439-8 (Version None)
Quarter: 2005Q3

REPORT INFORMATION
  Report Type: 
  Country: None (occurrence: None)
  Receive Date: 20050810
  Receipt Date: 20050803
  Transmission Date: 20060218
  Serious: Yes (Hospitalization)
  Sender: FDA-Public Use
  Company Number: 2005CG01345

PATIENT
  Age: 12 Year
  Sex: Female

DRUGS (5)
  1. ZESTRIL [Suspect]
     Indication: HYPERTENSION
     Route: 048
     Dates: start: 20050429, end: 20050701
  2. DEPAKENE [Suspect]
     Route: 048
     Dates: start: 20050615
  3. GARDENAL [Suspect]
     Route: 048
     Dates: start: 20050518
  4. LOVENOX [Suspect]
     Route: 058
     Dates: start: 20050501
  5. CORGARD [Concomitant]
     Dates: end: 20050601

REACTIONS (1)
  - APLASTIC ANAEMIA [None]
